FAERS Safety Report 8290367-9 (Version None)
Quarter: 2012Q2

REPORT INFORMATION
  Report Type: 
  Country: None (occurrence: None)
  Receive Date: 20120412
  Receipt Date: 20120412
  Transmission Date: 20120825
  Serious: Yes (Life-Threatening, Hospitalization, Other)
  Sender: FDA-Public Use
  Company Number: None

PATIENT
  Age: 36 Year
  Sex: Female
  Weight: 77.1115 kg

DRUGS (1)
  1. LISTERINE ZERO MOUTHWASH CLEN MINT (ORAL CARE PRODUCTS) LIQUID [Suspect]
     Indication: PRODUCT USED FOR UNKNOWN INDICATION
     Dosage: APPROXIMATELY ONE OUNCE ONCE FOR LESS THAN 10 TO 15 SECONDS

REACTIONS (8)
  - ORAL MUCOSAL EXFOLIATION [None]
  - RESPIRATORY DISTRESS [None]
  - VOMITING [None]
  - IMPAIRED WORK ABILITY [None]
  - APPLICATION SITE BURN [None]
  - LIP PAIN [None]
  - DRUG INEFFECTIVE [None]
  - ANAPHYLACTIC SHOCK [None]
